FAERS Safety Report 9099036 (Version 2)
Quarter: 2013Q2

REPORT INFORMATION
  Report Type: Spontaneous
  Country: JP (occurrence: JP)
  Receive Date: 20130214
  Receipt Date: 20130403
  Transmission Date: 20140414
  Serious: Yes (Hospitalization)
  Sender: FDA-Public Use
  Company Number: JP-B.I. PHARMACEUTICALS,INC./RIDGEFIELD-2013-BI-03661NB

PATIENT
  Age: 63 Year
  Sex: Male
  Weight: 52 kg

DRUGS (13)
  1. BI-SIFROL [Suspect]
     Indication: PARKINSON^S DISEASE
     Dosage: 0.5 MG
     Route: 048
     Dates: start: 201201, end: 20130204
  2. BI-SIFROL [Suspect]
     Indication: RESTLESS LEGS SYNDROME
  3. JANUVIA [Suspect]
     Indication: DIABETES MELLITUS
     Dosage: 50 MG
     Route: 048
     Dates: start: 2011, end: 20120205
  4. PIRESPA [Concomitant]
     Indication: INTERSTITIAL LUNG DISEASE
     Dosage: 1800 MG
     Route: 048
     Dates: start: 20120228
  5. MUCODYNE [Concomitant]
     Indication: INTERSTITIAL LUNG DISEASE
     Dosage: 1500 MCG
     Route: 048
     Dates: start: 2011
  6. MUCOSOLVAN [Concomitant]
     Indication: INTERSTITIAL LUNG DISEASE
     Dosage: 45 MG
     Route: 048
     Dates: start: 2011
  7. FASTIC [Concomitant]
     Indication: DIABETES MELLITUS
     Dosage: 270 MG
     Route: 048
     Dates: start: 2011
  8. LOXONIN [Concomitant]
     Indication: LOWER EXTREMITY MASS
     Route: 048
     Dates: start: 2011
  9. MUCOSTA [Concomitant]
     Indication: LOWER EXTREMITY MASS
     Route: 048
     Dates: start: 2011
  10. PANTOSIN [Concomitant]
     Indication: CONSTIPATION
     Dosage: 1 G
     Route: 048
     Dates: start: 2011
  11. KAMAG G [Concomitant]
     Indication: CONSTIPATION
     Dosage: 1 G
     Route: 048
     Dates: start: 2011
  12. NEODOPASTON [Concomitant]
     Indication: PARKINSON^S DISEASE
     Dosage: 200 MG
     Route: 048
     Dates: start: 2011
  13. TRYPTANOL [Concomitant]
     Indication: PAIN IN EXTREMITY
     Dosage: 0.25 MG
     Route: 048
     Dates: start: 2011

REACTIONS (1)
  - Rhabdomyolysis [Recovered/Resolved]
